FAERS Safety Report 7538806-2 (Version None)
Quarter: 2011Q2

REPORT INFORMATION
  Report Type: 
  Country: None (occurrence: None)
  Receive Date: 20110610
  Receipt Date: 20110526
  Transmission Date: 20111010
  Serious: Yes (Other)
  Sender: FDA-Public Use
  Company Number: US-BAYER-201039969NA

PATIENT
  Age: 45 Year
  Sex: Female
  Weight: 95.238 kg

DRUGS (11)
  1. YASMIN [Suspect]
     Indication: ACNE
     Route: 048
  2. YASMIN [Suspect]
     Indication: CONTRACEPTION
  3. PHENAZOPYRIDINE HCL TAB [Concomitant]
     Dosage: 200 MG, TID
     Route: 048
     Dates: start: 20060728
  4. OXYCODONE HCL [Concomitant]
     Dosage: 10 MG, BID
  5. YASMIN [Suspect]
     Indication: MENORRHAGIA
  6. YASMIN [Suspect]
     Indication: MOOD SWINGS
  7. PHENAZOPYRIDINE HCL TAB [Concomitant]
     Dosage: 200 MG, TID
     Dates: start: 20060802
  8. CEPHALEXIN [Concomitant]
     Dosage: 500 MG, QID
     Route: 048
     Dates: start: 20060815
  9. SCOPOLAMINE [Concomitant]
     Dosage: UNK
     Route: 062
     Dates: start: 20060827
  10. EFFEXOR XR [Concomitant]
     Dosage: QD150 MG, QD
     Route: 048
     Dates: start: 20060711
  11. OXYCODONE HCL [Concomitant]
     Dosage: 5 MG, Q4HR
     Route: 048
     Dates: start: 20060815

REACTIONS (3)
  - LIVER INJURY [None]
  - PORTAL VEIN THROMBOSIS [None]
  - SPLEEN DISORDER [None]
